FAERS Safety Report 13569097 (Version 1)
Quarter: 2017Q2

REPORT INFORMATION
  Report Type: Spontaneous
  Country: US (occurrence: US)
  Receive Date: 20170522
  Receipt Date: 20170522
  Transmission Date: 20170830
  Serious: No
  Sender: FDA-Public Use
  Company Number: US-BAYER-2017-088281

PATIENT
  Age: 51 Year
  Sex: Female
  Weight: 49.98 kg

DRUGS (3)
  1. ZYRTEC [Concomitant]
     Active Substance: CETIRIZINE HYDROCHLORIDE
     Dosage: UNK
  2. ALEVE [Suspect]
     Active Substance: NAPROXEN SODIUM
     Indication: PAIN
     Dosage: 2 DF, QD; CONSUMER SAID SHE ALWAYS TAKES ALEVE WITH FOOD.
     Route: 048
     Dates: start: 2012, end: 2016
  3. ALEVE [Suspect]
     Active Substance: NAPROXEN SODIUM
     Indication: PAIN
     Dosage: 1 DF, QD; CONSUMER SAID SHE ALWAYS TAKES ALEVE WITH FOOD.
     Route: 048
     Dates: start: 20170505

REACTIONS (3)
  - Gastrooesophageal reflux disease [Recovering/Resolving]
  - Therapeutic response unexpected [None]
  - Abdominal discomfort [Recovering/Resolving]

NARRATIVE: CASE EVENT DATE: 20170505
